FAERS Safety Report 18085470 (Version 1)
Quarter: 2020Q3

REPORT INFORMATION
  Report Type: Spontaneous
  Country: US (occurrence: US)
  Receive Date: 20200728
  Receipt Date: 20200728
  Transmission Date: 20201103
  Serious: No
  Sender: FDA-Public Use
  Company Number: None

PATIENT
  Age: 72 Year
  Sex: Male
  Weight: 77.11 kg

DRUGS (1)
  1. SEMAGLUTIDE (SEMAGLUTIDE 0.5MG/0.375ML INJ, SOLN, PEN, 1.5ML) [Suspect]
     Active Substance: SEMAGLUTIDE
     Indication: DIABETES MELLITUS
     Dates: start: 20190423, end: 20191028

REACTIONS (5)
  - Nausea [None]
  - Abdominal pain [None]
  - Lipase increased [None]
  - Abdominal pain lower [None]
  - Injection site pain [None]

NARRATIVE: CASE EVENT DATE: 20191028
